FAERS Safety Report 17879650 (Version 1)
Quarter: 2020Q2

REPORT INFORMATION
  Report Type: Spontaneous
  Country: US (occurrence: US)
  Receive Date: 20200610
  Receipt Date: 20200610
  Transmission Date: 20200714
  Serious: Yes (Hospitalization, Other)
  Sender: FDA-Public Use
  Company Number: US-TEVA-2020-US-1245479

PATIENT
  Sex: Male

DRUGS (1)
  1. FENTORA [Suspect]
     Active Substance: FENTANYL CITRATE
     Indication: PAIN
     Dosage: START DATE: 2013 OR 2014
     Route: 065

REACTIONS (15)
  - General physical health deterioration [Unknown]
  - Wrong technique in product usage process [Unknown]
  - Facial paralysis [Unknown]
  - Product use in unapproved indication [Unknown]
  - Coma [Unknown]
  - Amyotrophic lateral sclerosis [Unknown]
  - Renal disorder [Unknown]
  - Monoplegia [Unknown]
  - Product dose omission [Unknown]
  - Atrial fibrillation [Unknown]
  - Pain [Unknown]
  - Necrotising fasciitis [Unknown]
  - Skin cancer [Unknown]
  - Adverse event [Unknown]
  - Near death experience [Unknown]
